FAERS Safety Report 8890321 (Version 4)
Quarter: 2015Q1

REPORT INFORMATION
  Report Type: Spontaneous
  Country: US (occurrence: US)
  Receive Date: 20121107
  Receipt Date: 20150105
  Transmission Date: 20150721
  Serious: Yes (Death, Hospitalization, Disabling)
  Sender: FDA-Public Use
  Company Number: US-SANOFI-AVENTIS-2012SA081228

PATIENT
  Age: 72 Year
  Sex: Female

DRUGS (25)
  1. ASPIRIN. [Suspect]
     Active Substance: ASPIRIN
     Route: 065
  2. HYDROCHLOROTHIAZIDE. [Concomitant]
     Active Substance: HYDROCHLOROTHIAZIDE
     Dates: start: 20091102
  3. CODEINE [Concomitant]
     Active Substance: CODEINE
     Dates: start: 20090615
  4. LEVAQUIN [Concomitant]
     Active Substance: LEVOFLOXACIN
     Dates: start: 20090803
  5. METOPROLOL TARTRATE. [Concomitant]
     Active Substance: METOPROLOL TARTRATE
     Dates: start: 20080506
  6. AMLODIPINE BESILATE [Concomitant]
     Active Substance: AMLODIPINE BESYLATE
     Dates: start: 20080508
  7. HYDROCODONE [Concomitant]
     Active Substance: HYDROCODONE
     Dates: start: 20080630
  8. ALL OTHER THERAPEUTIC PRODUCTS [Concomitant]
     Active Substance: UNSPECIFIED INGREDIENT
     Dates: start: 20081028
  9. TRAMADOL [Concomitant]
     Active Substance: TRAMADOL
     Dates: start: 20090112
  10. LEXAPRO [Concomitant]
     Active Substance: ESCITALOPRAM OXALATE
     Dates: start: 20080506
  11. CELEBREX [Concomitant]
     Active Substance: CELECOXIB
     Dates: start: 20090209
  12. NAFTIN [Concomitant]
     Active Substance: NAFTIFINE HYDROCHLORIDE
     Dates: start: 20090323
  13. ALL OTHER THERAPEUTIC PRODUCTS [Concomitant]
     Active Substance: UNSPECIFIED INGREDIENT
     Dates: start: 20090826
  14. PLAVIX [Suspect]
     Active Substance: CLOPIDOGREL BISULFATE
     Indication: TRANSIENT ISCHAEMIC ATTACK
     Route: 048
     Dates: start: 2000, end: 20120515
  15. SIMVASTATIN. [Concomitant]
     Active Substance: SIMVASTATIN
     Dates: start: 20080424
  16. OMEPRAZOLE. [Concomitant]
     Active Substance: OMEPRAZOLE
     Dates: start: 20080506
  17. MELOXICAM. [Concomitant]
     Active Substance: MELOXICAM
     Dates: start: 20080429
  18. LYRICA [Concomitant]
     Active Substance: PREGABALIN
     Dates: start: 20080512
  19. SEROQUEL [Concomitant]
     Active Substance: QUETIAPINE FUMARATE
     Dates: start: 20080418
  20. TOLTERODINE L-TARTRATE [Concomitant]
     Dates: start: 20090116
  21. CIPROFLOXACIN. [Concomitant]
     Active Substance: CIPROFLOXACIN
     Dates: start: 20091119
  22. RISPERDAL [Concomitant]
     Active Substance: RISPERIDONE
     Dates: start: 20080422
  23. PROPOXYPHENE. [Concomitant]
     Active Substance: PROPOXYPHENE
     Dates: start: 20090813
  24. ANUCORT-HC [Concomitant]
     Active Substance: HYDROCORTISONE ACETATE
     Dates: start: 20080606
  25. POLYSPORIN [Concomitant]
     Active Substance: BACITRACIN ZINC\POLYMYXIN B SULFATE
     Dates: start: 20090206

REACTIONS (7)
  - Feeling cold [Unknown]
  - Rectal haemorrhage [Fatal]
  - Pain [Unknown]
  - Physical disability [Unknown]
  - Injury [Unknown]
  - Gastrointestinal haemorrhage [Fatal]
  - Abdominal pain upper [Fatal]

NARRATIVE: CASE EVENT DATE: 20090827
